FAERS Safety Report 15728782 (Version 1)
Quarter: 2018Q4

REPORT INFORMATION
  Report Type: Spontaneous
  Country: US (occurrence: US)
  Receive Date: 20181214
  Receipt Date: 20181214
  Transmission Date: 20190205
  Serious: Yes (Life-Threatening, Other)
  Sender: FDA-Public Use
  Company Number: None

PATIENT
  Age: 51 Year
  Sex: Female
  Weight: 93.15 kg

DRUGS (17)
  1. AIMOVIG [Suspect]
     Active Substance: ERENUMAB-AOOE
     Indication: MIGRAINE
     Dosage: ?          QUANTITY:2 INJECTION(S);OTHER FREQUENCY:ONCE MONTLY;?
     Route: 058
     Dates: start: 20180715, end: 20181120
  2. TROKENDI [Concomitant]
     Active Substance: TOPIRAMATE
  3. VERAPAMIL [Concomitant]
     Active Substance: VERAPAMIL HYDROCHLORIDE
  4. SYNTHROID [Concomitant]
     Active Substance: LEVOTHYROXINE SODIUM
  5. FENOFIBRATE. [Concomitant]
     Active Substance: FENOFIBRATE
  6. ALBUTEROL. [Concomitant]
     Active Substance: ALBUTEROL
  7. CAMBIA [Concomitant]
     Active Substance: DICLOFENAC POTASSIUM
  8. TRAZODONE [Concomitant]
     Active Substance: TRAZODONE HYDROCHLORIDE
  9. DESIPRAMINE [Concomitant]
     Active Substance: DESIPRAMINE
  10. METFORMIN [Concomitant]
     Active Substance: METFORMIN HYDROCHLORIDE
  11. RIBOFLAVIN [Concomitant]
     Active Substance: RIBOFLAVIN
  12. VITAMIN D [Concomitant]
     Active Substance: CHOLECALCIFEROL
  13. AZELASTINE. [Concomitant]
     Active Substance: AZELASTINE HYDROCHLORIDE
  14. MULTI-VITAMIN PLUS D [Concomitant]
  15. CYTOMEL [Concomitant]
     Active Substance: LIOTHYRONINE SODIUM
  16. DEXILANT [Concomitant]
     Active Substance: DEXLANSOPRAZOLE
  17. MAGNESIUM OXIDE. [Concomitant]
     Active Substance: MAGNESIUM OXIDE

REACTIONS (8)
  - Dehydration [None]
  - Serum sickness [None]
  - Injection related reaction [None]
  - Insomnia [None]
  - Hypocalcaemia [None]
  - Diarrhoea [None]
  - Acute kidney injury [None]
  - Visual impairment [None]

NARRATIVE: CASE EVENT DATE: 20181120
